FAERS Safety Report 5571702-9 (Version None)
Quarter: 2007Q4

REPORT INFORMATION
  Report Type: 
  Country: None (occurrence: None)
  Receive Date: 20071221
  Receipt Date: 20071030
  Transmission Date: 20080405
  Serious: No
  Sender: FDA-Public Use
  Company Number: US-BAYER-US-2007-041115

PATIENT
  Sex: Female

DRUGS (1)
  1. YAZ [Suspect]
     Route: 048

REACTIONS (3)
  - ABDOMINAL PAIN [None]
  - DRUG DOSE OMISSION [None]
  - METRORRHAGIA [None]
